FAERS Safety Report 10084165 (Version 1)
Quarter: 2014Q2

REPORT INFORMATION
  Report Type: Report from Study
  Country: US (occurrence: US)
  Receive Date: 20140417
  Receipt Date: 20140417
  Transmission Date: 20141212
  Serious: Yes (Hospitalization, Other)
  Sender: FDA-Public Use
  Company Number: US-ABBVIE-14P-163-1222991-00

PATIENT
  Sex: Female

DRUGS (8)
  1. HUMIRA [Suspect]
     Indication: RHEUMATOID ARTHRITIS
     Dates: end: 201312
  2. HUMIRA [Suspect]
     Dates: start: 20140401
  3. TOLTERODINE [Concomitant]
     Indication: PRODUCT USED FOR UNKNOWN INDICATION
  4. PREDNISONE [Concomitant]
     Indication: PRODUCT USED FOR UNKNOWN INDICATION
  5. SIMVASTATIN [Concomitant]
     Indication: BLOOD CHOLESTEROL INCREASED
  6. FOLIC ACID [Concomitant]
     Indication: PRODUCT USED FOR UNKNOWN INDICATION
  7. CALCIUM [Concomitant]
     Indication: MINERAL SUPPLEMENTATION
  8. CRANBERRY [Concomitant]
     Indication: SUPPLEMENTATION THERAPY
     Dosage: PILLS

REACTIONS (6)
  - Gun shot wound [Unknown]
  - Cerebrovascular accident [Recovered/Resolved]
  - Balance disorder [Unknown]
  - Fall [Unknown]
  - Hip fracture [Recovered/Resolved]
  - Memory impairment [Unknown]
